FAERS Safety Report 4746534-1 (Version None)
Quarter: 2005Q3

REPORT INFORMATION
  Report Type: 
  Country: None (occurrence: None)
  Receive Date: 20050815
  Receipt Date: 20050804
  Transmission Date: 20060218
  Serious: Yes (Hospitalization)
  Sender: FDA-Public Use
  Company Number: HQWYE697704AUG05

PATIENT
  Age: 77 Year
  Sex: Male

DRUGS (5)
  1. PANTOPRAZOLE SODIUM [Suspect]
     Dosage: 40 MG 1X PER 1 DAY, ORAL
     Route: 048
  2. CETORNAN (ORNITHINE OXOGLURATE, ) [Suspect]
  3. DOMPERIDONE (DOMPERIDONE, ) [Suspect]
     Dosage: 20 MG X PER I DAY, ORAL
     Route: 048
  4. VICTAN            (ETHYL LOFLAZEPATE) [Suspect]
     Dosage: 2 MG, 1X PER 1 DAY, ORAL
     Route: 048
  5. XELODA [Concomitant]

REACTIONS (5)
  - ANAEMIA [None]
  - ANASTOMOTIC ULCER [None]
  - GENERAL PHYSICAL HEALTH DETERIORATION [None]
  - HAEMATEMESIS [None]
  - MELAENA [None]
